FAERS Safety Report 7618583-7 (Version None)
Quarter: 2011Q3

REPORT INFORMATION
  Report Type: 
  Country: None (occurrence: None)
  Receive Date: 20110718
  Receipt Date: 20110706
  Transmission Date: 20111222
  Serious: Yes (Other)
  Sender: FDA-Public Use
  Company Number: CA-SANOFI-AVENTIS-2011SA003780

PATIENT
  Sex: Female

DRUGS (12)
  1. LORAZEPAM [Concomitant]
  2. ASPIRIN [Concomitant]
  3. MULTI-VITAMINS [Concomitant]
  4. BISOPROLOL [Concomitant]
  5. BLINDED THERAPY [Suspect]
     Route: 048
     Dates: start: 20110111, end: 20110116
  6. DIPHENHYDRAMINE HYDROCHLORIDE [Concomitant]
  7. TYLENOL-500 [Concomitant]
  8. WARFARIN SODIUM [Concomitant]
  9. VITAMIN D [Concomitant]
  10. DRONEDARONE HCL [Suspect]
     Route: 048
     Dates: start: 20110117, end: 20110118
  11. LANSOPRAZOLE [Concomitant]
  12. PROPAFENONE HCL [Concomitant]

REACTIONS (1)
  - CARDIAC FAILURE [None]
